FAERS Safety Report 10079078 (Version 1)
Quarter: 2014Q2

REPORT INFORMATION
  Report Type: Spontaneous
  Country: US (occurrence: None)
  Receive Date: 20140411
  Receipt Date: 20140411
  Transmission Date: 20141212
  Serious: Yes (Other)
  Sender: FDA-Public Use
  Company Number: None

PATIENT
  Age: 75 Year
  Sex: Female
  Weight: 40.82 kg

DRUGS (2)
  1. NITROFURANTOIN [Suspect]
     Indication: PRODUCT USED FOR UNKNOWN INDICATION
     Dates: start: 20140312, end: 20140318
  2. CELEXA [Concomitant]

REACTIONS (4)
  - Peripheral swelling [None]
  - Pruritus [None]
  - Pruritus [None]
  - Erythema [None]
